FAERS Safety Report 4277260-3 (Version None)
Quarter: 2004Q1

REPORT INFORMATION
  Report Type: 
  Country: None (occurrence: None)
  Receive Date: 20040120
  Receipt Date: 20040105
  Transmission Date: 20041129
  Serious: Yes (Hospitalization)
  Sender: FDA-Public Use
  Company Number: UK059707

PATIENT
  Age: 14 Year
  Sex: Male

DRUGS (1)
  1. NEUPOGEN [Suspect]
     Dosage: 70 MCG, PER CHEMO REGIMEN, SC
     Route: 058
     Dates: start: 20030929, end: 20031004

REACTIONS (9)
  - DEHYDRATION [None]
  - DIARRHOEA [None]
  - EJECTION FRACTION DECREASED [None]
  - GRANULOCYTOPENIA [None]
  - HYPOTENSION [None]
  - INFECTION [None]
  - PYREXIA [None]
  - URINARY RETENTION [None]
  - VOMITING [None]
